FAERS Safety Report 8776864 (Version 3)
Quarter: 2012Q4

REPORT INFORMATION
  Report Type: Report from Study
  Country: US (occurrence: US)
  Receive Date: 20120911
  Receipt Date: 20120925
  Transmission Date: 20130627
  Serious: Yes (Hospitalization, Other)
  Sender: FDA-Public Use
  Company Number: US-VERTEX PHARMACEUTICAL INC.-AE-2012-010601

PATIENT
  Age: 37 Year
  Sex: Female
  Weight: 72.5 kg

DRUGS (11)
  1. VX-950 [Suspect]
     Indication: HEPATITIS C
     Dosage: 1125 mg, UNK
     Route: 048
     Dates: start: 20120430, end: 20120718
  2. PLACEBO [Suspect]
     Indication: HEPATITIS C
     Dosage: 800 mg, UNK
     Route: 048
     Dates: start: 20120430, end: 20120718
  3. PEGINTERFERON ALFA-2A [Suspect]
     Indication: HEPATITIS C
     Dosage: 135 ?g, UNK
     Route: 058
     Dates: start: 20120430, end: 20120715
  4. RIBAVIRIN [Suspect]
     Indication: HEPATITIS C
     Dosage: 600 mg, UNK
     Route: 048
     Dates: start: 20120430, end: 20120718
  5. TYLENOL [Concomitant]
     Indication: MIGRAINE
     Dates: start: 1980
  6. MULTI-VITAMINS [Concomitant]
     Dates: start: 20120322
  7. TRAMADOL [Concomitant]
     Indication: MIGRAINE
     Dates: start: 20120416
  8. METROGEL [Concomitant]
     Indication: ROSACEA
     Dates: start: 20120416
  9. GAS X [Concomitant]
     Dates: start: 20120626
  10. EQUATE ALLERGY RELIEF [Concomitant]
     Indication: RASH PRURITIC
     Dates: start: 20120711
  11. GOLD BOND INTENSIVE HEALING CREAM [Concomitant]
     Indication: RASH PRURITIC
     Dates: start: 20120711

REACTIONS (3)
  - Dyspnoea [Not Recovered/Not Resolved]
  - Stevens-Johnson syndrome [Recovered/Resolved]
  - Rash [Recovered/Resolved]
